FAERS Safety Report 13469759 (Version 1)
Quarter: 2017Q2

REPORT INFORMATION
  Report Type: Spontaneous
  Country: US (occurrence: US)
  Receive Date: 20170422
  Receipt Date: 20170422
  Transmission Date: 20170830
  Serious: No
  Sender: FDA-Public Use
  Company Number: PHEH2017US011757

PATIENT
  Age: 17 Year
  Sex: Male

DRUGS (1)
  1. VOTRIENT [Suspect]
     Active Substance: PAZOPANIB HYDROCHLORIDE
     Indication: GASTROINTESTINAL STROMAL TUMOUR
     Dosage: 600 MG, QD
     Route: 048
     Dates: start: 20170106

REACTIONS (3)
  - Alopecia [Unknown]
  - Hair colour changes [Unknown]
  - Eyelash discolouration [Unknown]

NARRATIVE: CASE EVENT DATE: 20170418
